FAERS Safety Report 6788975-7 (Version None)
Quarter: 2010Q2

REPORT INFORMATION
  Report Type: 
  Country: None (occurrence: None)
  Receive Date: 20100623
  Receipt Date: 20080617
  Transmission Date: 20101027
  Serious: No
  Sender: FDA-Public Use
  Company Number: US-PFIZER INC-2008051023

PATIENT
  Sex: Female
  Weight: 54.43 kg

DRUGS (5)
  1. COLESTID [Suspect]
     Indication: DIARRHOEA
     Dates: start: 20080601
  2. COLESTID [Suspect]
     Indication: OFF LABEL USE
  3. ERGOCALCIFEROL [Concomitant]
  4. CALCIUM CARBONATE [Concomitant]
  5. LOPERAMIDE HYDROCHLORIDE [Concomitant]

REACTIONS (2)
  - CONSTIPATION [None]
  - HEADACHE [None]
